FAERS Safety Report 21816714 (Version 1)
Quarter: 2023Q1

REPORT INFORMATION
  Report Type: Report from Study
  Country: US (occurrence: US)
  Receive Date: 20230104
  Receipt Date: 20230104
  Transmission Date: 20230418
  Serious: No
  Sender: FDA-Public Use
  Company Number: US-ABBVIE-4257123

PATIENT
  Sex: Female

DRUGS (1)
  1. VENCLEXTA [Suspect]
     Active Substance: VENETOCLAX
     Indication: B-cell small lymphocytic lymphoma
     Route: 048
     Dates: start: 20220802

REACTIONS (6)
  - Spondylitis [Unknown]
  - Back disorder [Unknown]
  - Seasonal allergy [Unknown]
  - Nerve compression [Unknown]
  - Nausea [Unknown]
  - Arthritis [Unknown]
